FAERS Safety Report 7561684-2 (Version None)
Quarter: 2011Q2

REPORT INFORMATION
  Report Type: 
  Country: None (occurrence: None)
  Receive Date: 20110621
  Receipt Date: 20110131
  Transmission Date: 20111010
  Serious: No
  Sender: FDA-Public Use
  Company Number: US-ASTRAZENECA-2011SE05350

PATIENT
  Age: 59 Year
  Sex: Female

DRUGS (3)
  1. RHINOCORT [Suspect]
     Indication: MIGRAINE
     Route: 045
  2. THYME [Concomitant]
  3. EFFEXOR [Concomitant]

REACTIONS (5)
  - NASAL DISCOMFORT [None]
  - TINNITUS [None]
  - DRUG DOSE OMISSION [None]
  - HEADACHE [None]
  - EAR PAIN [None]
